FAERS Safety Report 8992683 (Version 1)
Quarter: 2013Q1

REPORT INFORMATION
  Report Type: Spontaneous
  Country: CH (occurrence: CH)
  Receive Date: 20130101
  Receipt Date: 20130101
  Transmission Date: 20140127
  Serious: Yes (Life-Threatening, Other)
  Sender: FDA-Public Use
  Company Number: CH-BRISTOL-MYERS SQUIBB COMPANY-17235060

PATIENT
  Age: 78 Year
  Sex: Female

DRUGS (6)
  1. ABILIFY [Suspect]
     Route: 048
     Dates: start: 20121115
  2. XENAZINE [Interacting]
     Indication: HUNTINGTON^S DISEASE
     Route: 048
     Dates: start: 201206
  3. SEROQUEL [Interacting]
     Indication: ABNORMAL BEHAVIOUR
     Route: 048
     Dates: end: 20121115
  4. TOVIAZ [Interacting]
     Route: 048
     Dates: end: 201211
  5. PANTOPRAZOLE [Concomitant]
     Route: 048
  6. SELIPRAN [Concomitant]
     Route: 048

REACTIONS (2)
  - Electrocardiogram QT prolonged [Not Recovered/Not Resolved]
  - Drug interaction [Unknown]
